FAERS Safety Report 6566282-5 (Version None)
Quarter: 2010Q1

REPORT INFORMATION
  Report Type: 
  Country: None (occurrence: None)
  Receive Date: 20100202
  Receipt Date: 20100122
  Transmission Date: 20100710
  Serious: Yes (Other)
  Sender: FDA-Public Use
  Company Number: IT-BAYER-200942344GPV

PATIENT
  Age: 61 Year
  Sex: Male

DRUGS (3)
  1. NEXAVAR [Suspect]
     Indication: HEPATIC NEOPLASM MALIGNANT NON-RESECTABLE
     Dosage: TOTAL DAILY DOSE: 800 MG
     Route: 048
     Dates: start: 20090928, end: 20091130
  2. TENOFOVIR DISOPROXIL FUMARATE [Concomitant]
     Route: 048
  3. LAMIVUDINE [Concomitant]

REACTIONS (1)
  - THYROIDITIS ACUTE [None]
